FAERS Safety Report 6531075-1 (Version None)
Quarter: 2010Q1

REPORT INFORMATION
  Report Type: 
  Country: None (occurrence: None)
  Receive Date: 20100108
  Receipt Date: 20091230
  Transmission Date: 20100710
  Serious: Yes (Hospitalization, Other)
  Sender: FDA-Public Use
  Company Number: GB-TEVA-219751ISR

PATIENT
  Age: 68 Year
  Sex: Female
  Weight: 69.9 kg

DRUGS (3)
  1. MIRTAZAPINE [Suspect]
     Indication: ANXIETY
     Route: 048
     Dates: start: 20091114, end: 20091205
  2. MIRTAZAPINE [Suspect]
     Route: 048
     Dates: start: 20091205, end: 20091209
  3. MIRTAZAPINE [Concomitant]

REACTIONS (3)
  - DIZZINESS [None]
  - HYPOKALAEMIA [None]
  - VISION BLURRED [None]
